FAERS Safety Report 8340987-8 (Version None)
Quarter: 2012Q2

REPORT INFORMATION
  Report Type: 
  Country: None (occurrence: None)
  Receive Date: 20120507
  Receipt Date: 20110607
  Transmission Date: 20120825
  Serious: No
  Sender: FDA-Public Use
  Company Number: US-MYLANLABS-2011S1011986

PATIENT
  Sex: Female

DRUGS (1)
  1. METHYLDOPA [Suspect]

REACTIONS (1)
  - DRUG SCREEN FALSE POSITIVE [None]
